FAERS Safety Report 4885731-1 (Version None)
Quarter: 2006Q1

REPORT INFORMATION
  Report Type: 
  Country: None (occurrence: None)
  Receive Date: 20060117
  Receipt Date: 20060104
  Transmission Date: 20060701
  Serious: Yes (Hospitalization, Other)
  Sender: FDA-Public Use
  Company Number: HQWYE586717NOV05

PATIENT
  Age: 41 Year
  Sex: Female

DRUGS (15)
  1. RAPAMUNE [Suspect]
     Indication: PROPHYLAXIS AGAINST TRANSPLANT REJECTION
     Dosage: SEE IMAGE, ORAL
     Route: 048
     Dates: start: 20050101, end: 20050101
  2. RAPAMUNE [Suspect]
     Indication: PROPHYLAXIS AGAINST TRANSPLANT REJECTION
     Dosage: SEE IMAGE, ORAL
     Route: 048
     Dates: start: 20051129, end: 20050101
  3. RAPAMUNE [Suspect]
     Indication: PROPHYLAXIS AGAINST TRANSPLANT REJECTION
     Dosage: SEE IMAGE, ORAL
     Route: 048
     Dates: start: 20051104, end: 20051116
  4. RAPAMUNE [Suspect]
     Indication: PROPHYLAXIS AGAINST TRANSPLANT REJECTION
     Dosage: SEE IMAGE, ORAL
     Route: 048
     Dates: start: 20050101, end: 20051205
  5. MYCOPHENOLATE MOFETIL (MYCOPHENOLATE MOFETIL, [Suspect]
     Dosage: 0.75 G 2X PER 1 DAY, ORAL
     Route: 048
     Dates: start: 20051104, end: 20051120
  6. NIFEDIPINE [Concomitant]
  7. HYDRALAZINE HCL [Concomitant]
  8. RANITIDINE [Concomitant]
  9. ACYCLOVIR [Concomitant]
  10. NISTATIN (NYSTATIN) [Concomitant]
  11. CALCIUM CARBONATE (CALCIUM CARBONATE) [Concomitant]
  12. INSULIN [Concomitant]
  13. FUROSEMIDE [Concomitant]
  14. PREDNISONE [Concomitant]
  15. SODIUM BICARBONATE IN PLASTIC CONTAINER [Concomitant]

REACTIONS (4)
  - HAEMODIALYSIS [None]
  - KIDNEY TRANSPLANT REJECTION [None]
  - LEUKOPENIA [None]
  - URINARY TRACT INFECTION [None]
